FAERS Safety Report 9515198 (Version 1)
Quarter: 2013Q1

REPORT INFORMATION
  Report Type: Spontaneous
  Country: US (occurrence: None)
  Receive Date: 20130305
  Receipt Date: 20130305
  Transmission Date: 20140127
  Serious: Yes (Hospitalization)
  Sender: FDA-Public Use
  Company Number: 163-21880-12122686

PATIENT
  Age: 71 Year
  Sex: Male

DRUGS (9)
  1. REVLIMID [Suspect]
     Indication: PLASMA CELL MYELOMA
     Dosage: 25 MG, 21 IN 21 D, PO?
     Route: 048
     Dates: start: 20120927
  2. VELCADE [Concomitant]
  3. PRILOSEC (OMEPRAZOLE) (UNKNOWN) [Concomitant]
  4. COLCRYS (COLCHICINE) (UNKNOWN) [Concomitant]
  5. GLUCOPHAGE (METFORMIN HYDROCHLORIDE) (UNKNOWN) [Concomitant]
  6. NOVOLIN R (INSULIN HUMAN) (UNKNOWN) [Concomitant]
  7. LOTENSIN (BENAZEPRIL HYDROCHLORIDE) (UNKNOWN) [Concomitant]
  8. LORTAB (VICODIN) (UNKNOWN) [Concomitant]
  9. ZOCOR (SIMVASTATIN) (UNKNOWN) [Concomitant]

REACTIONS (2)
  - Syncope [None]
  - Orthostatic hypotension [None]
